FAERS Safety Report 13329804 (Version 6)
Quarter: 2017Q2

REPORT INFORMATION
  Report Type: Spontaneous
  Country: JP (occurrence: JP)
  Receive Date: 20170313
  Receipt Date: 20170616
  Transmission Date: 20170830
  Serious: Yes (Death, Life-Threatening, Hospitalization, Other)
  Sender: FDA-Public Use
  Company Number: JP-009507513-1702JPN001500J

PATIENT
  Age: 75 Year
  Sex: Male
  Weight: 57 kg

DRUGS (101)
  1. ESLAX INTRAVENOUS 25MG/2.5ML [Suspect]
     Active Substance: ROCURONIUM BROMIDE
     Indication: NEUROMUSCULAR BLOCKING THERAPY
     Dosage: 120 MG, UNK
     Route: 042
     Dates: start: 20170119, end: 20170119
  2. ESLAX INTRAVENOUS 25MG/2.5ML [Suspect]
     Active Substance: ROCURONIUM BROMIDE
     Dosage: 150 MG, UNK
     Route: 042
     Dates: start: 20170124, end: 20170124
  3. ESLAX INTRAVENOUS 25MG/2.5ML [Suspect]
     Active Substance: ROCURONIUM BROMIDE
     Dosage: 60 MG, UNK
     Route: 042
     Dates: start: 20170131, end: 20170131
  4. VOLUVEN [Concomitant]
     Active Substance: HYDROXYETHYL STARCH 130/0.4
     Dosage: UNK
     Route: 051
     Dates: start: 20170119, end: 20170119
  5. HANP [Concomitant]
     Active Substance: CARPERITIDE
     Dosage: UNK
     Route: 051
     Dates: start: 20170119, end: 20170119
  6. FENTANYL CITRATE. [Concomitant]
     Active Substance: FENTANYL CITRATE
     Dosage: UNK
     Route: 051
     Dates: start: 20170119, end: 20170119
  7. FENTANYL CITRATE. [Concomitant]
     Active Substance: FENTANYL CITRATE
     Dosage: UNK
     Route: 051
     Dates: start: 20170120, end: 20170120
  8. NOREPINEPHRINE. [Concomitant]
     Active Substance: NOREPINEPHRINE
     Dosage: UNK
     Route: 051
     Dates: start: 20170119, end: 20170119
  9. POLARAMINE [Concomitant]
     Active Substance: DEXCHLORPHENIRAMINE MALEATE
     Dosage: UNK
     Route: 051
     Dates: start: 20170119, end: 20170119
  10. ROPION [Concomitant]
     Active Substance: FLURBIPROFEN AXETIL
     Dosage: UNK
     Route: 051
     Dates: start: 20170119, end: 20170119
  11. DESFLURANE. [Concomitant]
     Active Substance: DESFLURANE
     Dosage: UNK
     Route: 055
     Dates: start: 20170124, end: 20170124
  12. NEO-MINOPHAGEN C [Concomitant]
     Active Substance: AMMONIUM GLYCYRRHIZATE
     Dosage: UNK
     Route: 051
  13. OMEPRAZOLE. [Concomitant]
     Active Substance: OMEPRAZOLE
     Dosage: UNK
     Route: 051
  14. ESLAX INTRAVENOUS 25MG/2.5ML [Suspect]
     Active Substance: ROCURONIUM BROMIDE
     Dosage: 150 MG, UNK
     Route: 042
     Dates: start: 20170120, end: 20170120
  15. BRIDION [Concomitant]
     Active Substance: SUGAMMADEX
     Dosage: 200 MG, QD
     Route: 042
     Dates: start: 20170214, end: 20170214
  16. NICARDIPINE HYDROCHLORIDE. [Concomitant]
     Active Substance: NICARDIPINE HYDROCHLORIDE
     Dosage: UNK
     Route: 051
     Dates: start: 20170119, end: 20170119
  17. BICANATE [Concomitant]
     Dosage: UNK
     Route: 051
     Dates: start: 20170124, end: 20170124
  18. FENTANYL CITRATE. [Concomitant]
     Active Substance: FENTANYL CITRATE
     Dosage: UNK
     Route: 051
     Dates: start: 20170131, end: 20170131
  19. MEYLON [Concomitant]
     Active Substance: SODIUM BICARBONATE
     Dosage: UNK
     Route: 041
     Dates: start: 20170119, end: 20170119
  20. MEYLON [Concomitant]
     Active Substance: SODIUM BICARBONATE
     Dosage: UNK
     Route: 041
     Dates: start: 20170120, end: 20170120
  21. CALCIUM CHLORIDE. [Concomitant]
     Active Substance: CALCIUM CHLORIDE
     Dosage: UNK
     Route: 065
     Dates: start: 20170127, end: 20170127
  22. PROTAMINE SULFATE. [Concomitant]
     Active Substance: PROTAMINE SULFATE
     Dosage: UNK
     Route: 042
     Dates: start: 20170119, end: 20170119
  23. FRESH FROZEN PLASMA [Concomitant]
     Active Substance: HUMAN PLASMA
     Dosage: UNK
     Route: 051
     Dates: start: 20170119, end: 20170119
  24. TRANSAMIN [Concomitant]
     Active Substance: TRANEXAMIC ACID
     Dosage: UNK
     Route: 051
     Dates: start: 20170120, end: 20170120
  25. SEVOFLURANE. [Concomitant]
     Active Substance: SEVOFLURANE
     Dosage: UNK
     Route: 055
     Dates: start: 20170131, end: 20170131
  26. HUMULIN R [Concomitant]
     Active Substance: INSULIN HUMAN
     Dosage: UNK
     Route: 051
  27. DAIKENCHUTO [Concomitant]
     Active Substance: HERBALS
     Dosage: UNK
     Route: 048
  28. BRIDION [Concomitant]
     Active Substance: SUGAMMADEX
     Dosage: 200 MG, QD
     Route: 042
     Dates: start: 20170220, end: 20170220
  29. VOLUVEN [Concomitant]
     Active Substance: HYDROXYETHYL STARCH 130/0.4
     Dosage: UNK
     Route: 051
     Dates: start: 20170131, end: 20170131
  30. DORMICUM [Concomitant]
     Dosage: UNK
     Route: 051
     Dates: start: 20170124, end: 20170124
  31. DORMICUM [Concomitant]
     Dosage: UNK
     Route: 051
     Dates: start: 20170127, end: 20170127
  32. ULTIVA [Concomitant]
     Active Substance: REMIFENTANIL HYDROCHLORIDE
     Dosage: UNK
     Route: 051
     Dates: start: 20170119, end: 20170119
  33. ULTIVA [Concomitant]
     Active Substance: REMIFENTANIL HYDROCHLORIDE
     Dosage: UNK
     Route: 051
     Dates: start: 20170120, end: 20170120
  34. ULTIVA [Concomitant]
     Active Substance: REMIFENTANIL HYDROCHLORIDE
     Dosage: UNK
     Route: 051
     Dates: start: 20170124, end: 20170124
  35. EPHEDRIN [Concomitant]
     Active Substance: EPHEDRINE HYDROCHLORIDE
     Dosage: UNK
     Route: 065
     Dates: start: 20170119, end: 20170119
  36. NOREPINEPHRINE. [Concomitant]
     Active Substance: NOREPINEPHRINE
     Dosage: UNK
     Route: 051
     Dates: start: 20170127, end: 20170127
  37. MAGNESIUM SULFATE HYDRATE [Concomitant]
     Active Substance: MAGNESIUM SULFATE HEPTAHYDRATE
     Dosage: UNK
     Route: 051
     Dates: start: 20170119, end: 20170119
  38. PLATELETS [Concomitant]
     Active Substance: HUMAN PLATELET, ALLOGENIC
     Dosage: UNK
     Route: 051
     Dates: start: 20170120, end: 20170120
  39. SODIUM CHLORIDE. [Concomitant]
     Active Substance: SODIUM CHLORIDE
     Dosage: UNK
     Route: 065
     Dates: start: 20170120, end: 20170120
  40. KIDMIN [Concomitant]
     Active Substance: AMINO ACIDS\ELECTROLYTES NOS
     Dosage: UNK
     Route: 051
  41. MEROPENEM. [Concomitant]
     Active Substance: MEROPENEM
     Dosage: UNK
     Route: 051
  42. BICANATE [Concomitant]
     Dosage: UNK
     Route: 051
     Dates: start: 20170119, end: 20170119
  43. DORMICUM [Concomitant]
     Indication: SEDATION
     Dosage: UNK
     Route: 051
     Dates: start: 20170119, end: 20170119
  44. ALBUMIN [Concomitant]
     Active Substance: ALBUMIN HUMAN
     Dosage: UNK
     Route: 051
     Dates: start: 20170119, end: 20170119
  45. INOVAN [Concomitant]
     Active Substance: DOPAMINE HYDROCHLORIDE
     Dosage: UNK
     Route: 051
     Dates: start: 20170120, end: 20170120
  46. INOVAN [Concomitant]
     Active Substance: DOPAMINE HYDROCHLORIDE
     Dosage: UNK
     Route: 051
     Dates: start: 20170127, end: 20170127
  47. NEO-SYNESIN [Concomitant]
     Active Substance: PHENYLEPHRINE HYDROCHLORIDE
     Dosage: UNK
     Route: 051
     Dates: start: 20170124, end: 20170124
  48. NOREPINEPHRINE. [Concomitant]
     Active Substance: NOREPINEPHRINE
     Dosage: UNK
  49. POPSCAINE [Concomitant]
     Active Substance: LEVOBUPIVACAINE HYDROCHLORIDE
     Dosage: UNK
     Route: 051
     Dates: start: 20170119, end: 20170119
  50. OXYGEN. [Concomitant]
     Active Substance: OXYGEN
     Dosage: UNK
     Route: 065
     Dates: start: 20170120, end: 20170120
  51. OXYGEN. [Concomitant]
     Active Substance: OXYGEN
     Dosage: UNK
     Route: 065
     Dates: start: 20170131, end: 20170131
  52. PRECEDEX [Concomitant]
     Active Substance: DEXMEDETOMIDINE HYDROCHLORIDE
     Indication: SEDATION
     Dosage: UNK
     Route: 051
     Dates: start: 20170120, end: 20170129
  53. VITAJECT [Concomitant]
     Active Substance: CYANOCOBALAMIN\PYRIDOXAMINE HYDROCHLORIDE\THIAMINE HYDROCHLORIDE
     Dosage: UNK
     Route: 051
  54. PANTOL [Concomitant]
     Active Substance: DEXPANTHENOL
     Dosage: UNK
     Route: 051
  55. VANCOMYCIN HYDROCHLORIDE. [Concomitant]
     Active Substance: VANCOMYCIN HYDROCHLORIDE
     Dosage: UNK
     Route: 051
  56. URSO [Concomitant]
     Active Substance: URSODIOL
     Dosage: UNK
     Route: 048
  57. VOLUVEN [Concomitant]
     Active Substance: HYDROXYETHYL STARCH 130/0.4
     Dosage: UNK
     Route: 051
     Dates: start: 20170127, end: 20170127
  58. BICANATE [Concomitant]
     Dosage: UNK
     Route: 051
     Dates: start: 20170127, end: 20170127
  59. DORMICUM [Concomitant]
     Dosage: UNK
     Route: 051
     Dates: start: 20170131, end: 20170131
  60. ULTIVA [Concomitant]
     Active Substance: REMIFENTANIL HYDROCHLORIDE
     Dosage: UNK
     Route: 051
     Dates: start: 20170127, end: 20170127
  61. FENTANYL CITRATE. [Concomitant]
     Active Substance: FENTANYL CITRATE
     Dosage: UNK
     Route: 051
     Dates: start: 20170124, end: 20170124
  62. FENTANYL CITRATE. [Concomitant]
     Active Substance: FENTANYL CITRATE
     Dosage: UNK
     Route: 051
     Dates: start: 20170127, end: 20170127
  63. INOVAN [Concomitant]
     Active Substance: DOPAMINE HYDROCHLORIDE
     Dosage: UNK
     Route: 051
     Dates: start: 20170119, end: 20170119
  64. CALCIUM CHLORIDE. [Concomitant]
     Active Substance: CALCIUM CHLORIDE
     Dosage: UNK
     Route: 065
     Dates: start: 20170120, end: 20170120
  65. PLATELETS [Concomitant]
     Active Substance: HUMAN PLATELET, ALLOGENIC
     Dosage: UNK
     Route: 051
     Dates: start: 20170124, end: 20170124
  66. SEVOFLURANE. [Concomitant]
     Active Substance: SEVOFLURANE
     Dosage: UNK
     Route: 055
     Dates: start: 20170127, end: 20170127
  67. OXYGEN. [Concomitant]
     Active Substance: OXYGEN
     Dosage: UNK
     Route: 065
     Dates: start: 20170119, end: 20170119
  68. HEPARIN [Concomitant]
     Active Substance: HEPARIN SODIUM
     Dosage: UNK
     Route: 065
     Dates: start: 20170119, end: 20170119
  69. ELEJECT [Concomitant]
     Dosage: UNK
     Route: 051
  70. ESLAX INTRAVENOUS 25MG/2.5ML [Suspect]
     Active Substance: ROCURONIUM BROMIDE
     Dosage: 150 MG, UNK
     Route: 042
     Dates: start: 20170127, end: 20170127
  71. BRIDION [Concomitant]
     Active Substance: SUGAMMADEX
     Indication: NEUROMUSCULAR BLOCKADE REVERSAL
     Dosage: 200 MG, QD
     Route: 042
     Dates: start: 20170208, end: 20170208
  72. DORMICUM [Concomitant]
     Dosage: UNK
     Route: 051
     Dates: end: 20170202
  73. ALBUMIN [Concomitant]
     Active Substance: ALBUMIN HUMAN
     Dosage: UNK
     Route: 051
     Dates: start: 20170120, end: 20170120
  74. MEYLON [Concomitant]
     Active Substance: SODIUM BICARBONATE
     Dosage: UNK
     Route: 041
     Dates: start: 20170124, end: 20170124
  75. NEO-SYNESIN [Concomitant]
     Active Substance: PHENYLEPHRINE HYDROCHLORIDE
     Dosage: UNK
     Route: 051
     Dates: start: 20170127, end: 20170127
  76. NOREPINEPHRINE. [Concomitant]
     Active Substance: NOREPINEPHRINE
     Dosage: UNK
     Route: 051
     Dates: start: 20170131, end: 20170131
  77. ANAPEINE [Concomitant]
     Active Substance: ROPIVACAINE HYDROCHLORIDE
     Dosage: UNK
     Route: 051
     Dates: start: 20170119, end: 20170119
  78. SEVOFLURANE. [Concomitant]
     Active Substance: SEVOFLURANE
     Dosage: UNK
     Route: 055
     Dates: start: 20170120, end: 20170120
  79. OXYGEN. [Concomitant]
     Active Substance: OXYGEN
     Dosage: UNK
     Route: 065
     Dates: start: 20170124, end: 20170124
  80. OXYGEN. [Concomitant]
     Active Substance: OXYGEN
     Dosage: UNK
     Route: 065
     Dates: start: 20170127, end: 20170127
  81. SULBACILLIN [Concomitant]
     Active Substance: AMPICILLIN SODIUM\SULBACTAM SODIUM
     Dosage: UNK
     Route: 051
     Dates: start: 20170119, end: 20170119
  82. RED CELLS CONCENTRATES-LEUKOCYTES REDUCED [Concomitant]
     Dosage: UNK
     Route: 051
     Dates: start: 20170119, end: 20170119
  83. RED CELLS CONCENTRATES-LEUKOCYTES REDUCED [Concomitant]
     Dosage: UNK
     Route: 051
     Dates: start: 20170120, end: 20170120
  84. SEVOFLURANE. [Concomitant]
     Active Substance: SEVOFLURANE
     Dosage: UNK
     Route: 055
     Dates: start: 20170119, end: 20170119
  85. ELASPOL [Concomitant]
     Active Substance: SIVELESTAT SODIUM
     Dosage: UNK
     Route: 051
  86. MIYA-BM [Concomitant]
     Active Substance: CLOSTRIDIUM BUTYRICUM SPORES STRAIN M-55
     Dosage: UNK
     Route: 048
  87. ESLAX INTRAVENOUS 25MG/2.5ML [Suspect]
     Active Substance: ROCURONIUM BROMIDE
     Dosage: UNK
     Route: 041
     Dates: start: 20170120, end: 20170131
  88. BRIDION [Concomitant]
     Active Substance: SUGAMMADEX
     Dosage: 200 MG, QD
     Route: 042
     Dates: start: 20170217, end: 20170217
  89. NITROGLYCERIN. [Concomitant]
     Active Substance: NITROGLYCERIN
     Dosage: UNK
     Route: 065
     Dates: start: 20170119, end: 20170119
  90. BICANATE [Concomitant]
     Dosage: UNK
     Route: 051
     Dates: start: 20170131, end: 20170131
  91. DORMICUM [Concomitant]
     Dosage: UNK
     Route: 051
     Dates: start: 20170120, end: 20170120
  92. ULTIVA [Concomitant]
     Active Substance: REMIFENTANIL HYDROCHLORIDE
     Dosage: UNK
     Route: 051
     Dates: start: 20170131, end: 20170131
  93. ALBUMIN [Concomitant]
     Active Substance: ALBUMIN HUMAN
     Dosage: UNK
     Route: 051
     Dates: start: 20170131, end: 20170131
  94. MEYLON [Concomitant]
     Active Substance: SODIUM BICARBONATE
     Dosage: UNK
     Route: 041
     Dates: start: 20170127, end: 20170127
  95. CALCIUM CHLORIDE. [Concomitant]
     Active Substance: CALCIUM CHLORIDE
     Dosage: UNK
     Route: 065
     Dates: start: 20170119, end: 20170119
  96. NEO-SYNESIN [Concomitant]
     Active Substance: PHENYLEPHRINE HYDROCHLORIDE
     Dosage: UNK
     Route: 051
     Dates: start: 20170119, end: 20170119
  97. NOREPINEPHRINE. [Concomitant]
     Active Substance: NOREPINEPHRINE
     Dosage: UNK
     Route: 051
     Dates: start: 20170120, end: 20170120
  98. PITRESSIN [Concomitant]
     Active Substance: VASOPRESSIN
     Dosage: UNK
     Route: 051
     Dates: start: 20170120, end: 20170120
  99. HEPARIN [Concomitant]
     Active Substance: HEPARIN SODIUM
     Dosage: UNK
     Route: 065
     Dates: start: 20170120, end: 20170120
  100. SODIUM CHLORIDE. [Concomitant]
     Active Substance: SODIUM CHLORIDE
     Dosage: UNK
     Route: 065
     Dates: start: 20170119, end: 20170119
  101. HICALIQ RF [Concomitant]
     Active Substance: CALCIUM GLUCONATE\DEXTROSE\MAGNESIUM SULFATE\POTASSIUM ACETATE\POTASSIUM PHOSPHATE, DIBASIC\ZINC SULFATE
     Dosage: UNK
     Route: 051

REACTIONS (4)
  - Hepatic failure [Fatal]
  - Neuromuscular block prolonged [Fatal]
  - Altered state of consciousness [Not Recovered/Not Resolved]
  - Renal failure [Fatal]

NARRATIVE: CASE EVENT DATE: 20170120
